FAERS Safety Report 21257730 (Version 3)
Quarter: 2022Q4

REPORT INFORMATION
  Report Type: Report from Study
  Country: US (occurrence: None)
  Receive Date: 20220826
  Receipt Date: 20221005
  Transmission Date: 20230113
  Serious: Yes (Hospitalization)
  Sender: FDA-Public Use
  Company Number: US-ROCHE-3166547

PATIENT

DRUGS (2)
  1. ATEZOLIZUMAB [Suspect]
     Active Substance: ATEZOLIZUMAB
     Indication: Non-Hodgkin^s lymphoma
     Dosage: DATE OF MOST RECENT DOSE OF STUDY DRUG: 01/AUG/2022
     Route: 041
     Dates: start: 20220711
  2. TALAZOPARIB [Suspect]
     Active Substance: TALAZOPARIB
     Indication: Non-Hodgkin^s lymphoma
     Dosage: DATE OF MOST RECENT DOSE OF STUDY DRUG: 01/AUG/2022
     Route: 048
     Dates: start: 20220711

REACTIONS (3)
  - Confusional state [Recovered/Resolved]
  - Hypotension [Recovered/Resolved]
  - Sepsis [Unknown]

NARRATIVE: CASE EVENT DATE: 20220805
